FAERS Safety Report 8141518-8 (Version None)
Quarter: 2012Q1

REPORT INFORMATION
  Report Type: 
  Country: None (occurrence: None)
  Receive Date: 20120216
  Receipt Date: 20120201
  Transmission Date: 20120608
  Serious: Yes (Hospitalization, Disabling)
  Sender: FDA-Public Use
  Company Number: FR-ROCHE-709879

PATIENT
  Sex: Female
  Weight: 53 kg

DRUGS (8)
  1. BONIVA [Suspect]
     Indication: OSTEOPOROSIS
     Route: 048
     Dates: start: 20071101, end: 20100601
  2. ESCITALOPRAM OXALATE [Concomitant]
  3. TRAMADOL HYDROCHLORIDE [Concomitant]
     Dosage: DRUG: MONOCRIXO LP 100
     Route: 048
  4. PREDNISONE TAB [Concomitant]
  5. VITAMIN D [Concomitant]
  6. PROPRANOLOL [Suspect]
     Indication: HYPERTENSION
     Dosage: 0.5 TABLET
     Route: 048
  7. BROMAZEPAM [Concomitant]
     Dosage: HALF TABLET DAILY
     Route: 048
  8. ZOLPIDEM [Concomitant]
     Route: 048

REACTIONS (7)
  - PAPILLOEDEMA [None]
  - CATARACT [None]
  - VISUAL ACUITY REDUCED [None]
  - FACIAL NEURALGIA [None]
  - RETINAL DISORDER [None]
  - GLARE [None]
  - VISUAL PATHWAY DISORDER [None]
